FAERS Safety Report 6745192-4 (Version None)
Quarter: 2010Q2

REPORT INFORMATION
  Report Type: 
  Country: None (occurrence: None)
  Receive Date: 20100528
  Receipt Date: 20100517
  Transmission Date: 20101027
  Serious: Yes (Other)
  Sender: FDA-Public Use
  Company Number: US-ASTRAZENECA-2006UW03017

PATIENT
  Age: 623 Month
  Sex: Female
  Weight: 120.2 kg

DRUGS (7)
  1. SEROQUEL [Suspect]
     Indication: BIPOLAR I DISORDER
     Dosage: 200-400 MG
     Route: 048
     Dates: start: 19990707
  2. SEROQUEL [Suspect]
     Indication: SLEEP DISORDER
     Dosage: 200-400 MG
     Route: 048
     Dates: start: 19990707
  3. SEROQUEL [Suspect]
     Dosage: 200-300 MG
     Route: 048
     Dates: start: 20040901
  4. SEROQUEL [Suspect]
     Dosage: 200-300 MG
     Route: 048
     Dates: start: 20040901
  5. ABILIFY [Concomitant]
  6. LIPITOR [Concomitant]
     Route: 048
     Dates: start: 20060703
  7. REMERON [Concomitant]
     Route: 048

REACTIONS (5)
  - BLOOD CHOLESTEROL INCREASED [None]
  - DIABETES MELLITUS [None]
  - NEUROPATHY PERIPHERAL [None]
  - TYPE 2 DIABETES MELLITUS [None]
  - WEIGHT INCREASED [None]
